FAERS Safety Report 21988364 (Version 2)
Quarter: 2023Q2

REPORT INFORMATION
  Report Type: Spontaneous
  Country: NO (occurrence: NO)
  Receive Date: 20230214
  Receipt Date: 20230515
  Transmission Date: 20230722
  Serious: Yes (Disabling, Other)
  Sender: FDA-Public Use
  Company Number: None

PATIENT
  Age: 45 Year
  Sex: Male

DRUGS (1)
  1. CIPROFLOXACIN [Suspect]
     Active Substance: CIPROFLOXACIN
     Indication: Haematospermia
     Route: 065
     Dates: start: 20191010, end: 20191011

REACTIONS (23)
  - Joint swelling [Recovering/Resolving]
  - Myalgia [Recovering/Resolving]
  - Burning sensation [Recovering/Resolving]
  - Eye pain [Recovering/Resolving]
  - Malaise [Recovering/Resolving]
  - Drug hypersensitivity [Unknown]
  - Eye irritation [Unknown]
  - Fatigue [Unknown]
  - Arthralgia [Unknown]
  - Feeling abnormal [Unknown]
  - Asthenia [Unknown]
  - Paraesthesia [Unknown]
  - Hypoaesthesia [Unknown]
  - Hypoaesthesia [Unknown]
  - Insomnia [Unknown]
  - Pain [Unknown]
  - Tendon pain [Unknown]
  - Skin discolouration [Unknown]
  - Piloerection [Unknown]
  - Generalised oedema [Unknown]
  - Mobility decreased [Unknown]
  - Gait disturbance [Unknown]
  - Loss of personal independence in daily activities [Unknown]

NARRATIVE: CASE EVENT DATE: 20191001
